FAERS Safety Report 8842394 (Version 2)
Quarter: 2012Q4

REPORT INFORMATION
  Report Type: 
  Country: KR (occurrence: KR)
  Receive Date: 20121016
  Receipt Date: 20121218
  Transmission Date: 20130627
  Serious: Yes (Hospitalization)
  Sender: FDA-Public Use
  Company Number: KR-B.I. PHARMACEUTICALS,INC./RIDGEFIELD-2012-CS-01441RK

PATIENT
  Age: 87 Year
  Sex: Female

DRUGS (11)
  1. PRADAXA [Suspect]
     Indication: CEREBROVASCULAR ACCIDENT PROPHYLAXIS
     Dosage: 220 mg
     Route: 048
     Dates: start: 20120909, end: 20120910
  2. ASPIRIN MICRO [Concomitant]
     Indication: CEREBRAL INFARCTION
     Dosage: 100 mg
  3. ASPIRIN MICRO [Concomitant]
     Indication: CEREBRAL INFARCTION
  4. ATORVASTATIN [Concomitant]
     Dosage: 10 mg
  5. RANITIDINE [Concomitant]
     Dosage: 150 mg
  6. ACETYLCYSTEINE [Concomitant]
     Dosage: 400 mg
  7. AMBROXOL [Concomitant]
     Dosage: 60 mg
  8. TRIMETAZIDINE [Concomitant]
     Dosage: 70 mg
  9. FUROSEMIDE [Concomitant]
     Dosage: 20 mg
  10. VALSARTAN [Concomitant]
     Dosage: 80 mg
  11. IV/ORAL DYDRATION [Concomitant]

REACTIONS (4)
  - International normalised ratio increased [Recovered/Resolved]
  - Activated partial thromboplastin time prolonged [Recovered/Resolved]
  - Thrombin time prolonged [Unknown]
  - Creatinine renal clearance decreased [Unknown]
